FAERS Safety Report 6230781-6 (Version None)
Quarter: 2009Q2

REPORT INFORMATION
  Report Type: 
  Country: None (occurrence: None)
  Receive Date: 20090616
  Receipt Date: 20090603
  Transmission Date: 20091009
  Serious: Yes (Death)
  Sender: FDA-Public Use
  Company Number: GB-PFIZER INC-2009215856

PATIENT
  Age: 65 Year

DRUGS (1)
  1. CHAMPIX [Suspect]
     Dosage: UNK
     Route: 048
     Dates: start: 20090201, end: 20090414

REACTIONS (3)
  - DIABETES MELLITUS [None]
  - PNEUMONIA [None]
  - SEPSIS [None]
